FAERS Safety Report 13052960 (Version 10)
Quarter: 2019Q3

REPORT INFORMATION
  Report Type: Report from Study
  Country: US (occurrence: US)
  Receive Date: 20161222
  Receipt Date: 20190924
  Transmission Date: 20191004
  Serious: Yes (Hospitalization)
  Sender: FDA-Public Use
  Company Number: US-ROCHE-1869375

PATIENT
  Age: 85 Year
  Sex: Male
  Weight: 103.42 kg

DRUGS (64)
  1. ATEZOLIZUMAB. [Suspect]
     Active Substance: ATEZOLIZUMAB
     Indication: TRANSITIONAL CELL CARCINOMA
     Dosage: DATE OF MOST RECENT DOSE OF BLINDED ATEZOLIZUMAB PRIOR TO AE ONSET WAS ON 23/NOV/2016
     Route: 042
     Dates: start: 20161103
  2. COLACE [Concomitant]
     Active Substance: DOCUSATE SODIUM
     Route: 048
     Dates: start: 20170119, end: 20170605
  3. DIPHENHYDRAMINE. [Concomitant]
     Active Substance: DIPHENHYDRAMINE
     Indication: TRANSFUSION REACTION
     Route: 048
     Dates: start: 20161117, end: 20161117
  4. METOPROLOL. [Concomitant]
     Active Substance: METOPROLOL
     Indication: ATRIAL FIBRILLATION
     Route: 042
     Dates: start: 20170111, end: 20170112
  5. ALBUTEROL;IPRATROPIUM [Concomitant]
     Indication: DYSPNOEA
     Route: 045
     Dates: start: 20170113, end: 20170130
  6. GLYCOLAX [Concomitant]
     Active Substance: POLYETHYLENE GLYCOL 3350
     Indication: CONSTIPATION
     Route: 048
     Dates: start: 20170119, end: 20170119
  7. FUROSEMIDE. [Concomitant]
     Active Substance: FUROSEMIDE
     Route: 048
     Dates: start: 20170124, end: 20170130
  8. FENTANYL. [Concomitant]
     Active Substance: FENTANYL
     Dosage: 12.5-25 MCG
     Route: 042
     Dates: start: 20170117, end: 20170117
  9. MICONAZOLE. [Concomitant]
     Active Substance: MICONAZOLE
     Indication: RASH
     Dosage: 1 (DOSE UNIT: OTHER)
     Route: 061
     Dates: start: 20170127, end: 20170130
  10. CARBOPLATIN. [Suspect]
     Active Substance: CARBOPLATIN
     Indication: TRANSITIONAL CELL CARCINOMA
     Dosage: AREA UNDER THE CONCENTRATION (AUC) 4.5 (D1).?DATE OF MOST RECENT DOSE OF CARBOPLATIN WAS 23/NOV/2016
     Route: 041
     Dates: start: 20161103
  11. GEMCITABINE. [Suspect]
     Active Substance: GEMCITABINE
     Indication: TRANSITIONAL CELL CARCINOMA
     Dosage: GEMCITABINE 1000 MG/M2 (ON D1 AND D8) (PER PROTOCOL)?DATE OF MOST RECENT DOSE OF GEMCITABINE WAS ON
     Route: 042
     Dates: start: 20161103
  12. LEVAQUIN [Concomitant]
     Active Substance: LEVOFLOXACIN
     Indication: PROPHYLAXIS
     Route: 048
     Dates: start: 20161117, end: 201701
  13. PERI-COLACE [DOCUSATE SODIUM;SENNOSIDE A+B] [Concomitant]
     Indication: CONSTIPATION
     Dosage: PERICOLACE (50-8.6 MG)
     Route: 048
     Dates: start: 20161123, end: 20161216
  14. ESOMEPRAZOLE. [Concomitant]
     Active Substance: ESOMEPRAZOLE MAGNESIUM
     Indication: GASTROOESOPHAGEAL REFLUX DISEASE
     Route: 048
     Dates: start: 20161217, end: 20170605
  15. HYDRALAZINE [Concomitant]
     Active Substance: HYDRALAZINE HYDROCHLORIDE
     Indication: HYPERTENSION
     Route: 048
     Dates: start: 20161220, end: 20161220
  16. METOPROLOL. [Concomitant]
     Active Substance: METOPROLOL
     Route: 048
     Dates: start: 20170116, end: 20170118
  17. METOPROLOL. [Concomitant]
     Active Substance: METOPROLOL
     Route: 048
     Dates: start: 20170119, end: 20170605
  18. DIFLUCAN [Concomitant]
     Active Substance: FLUCONAZOLE
     Indication: DYSPHAGIA
     Route: 048
     Dates: start: 20170112, end: 20170113
  19. DILTIAZEM. [Concomitant]
     Active Substance: DILTIAZEM
     Indication: ATRIAL FIBRILLATION
     Route: 042
     Dates: start: 20170114, end: 20170115
  20. XARELTO [Concomitant]
     Active Substance: RIVAROXABAN
     Indication: DEEP VEIN THROMBOSIS
  21. FUROSEMIDE. [Concomitant]
     Active Substance: FUROSEMIDE
     Indication: HYPERTENSION
     Dosage: 20-40 MG
     Route: 042
     Dates: start: 20170122, end: 20170124
  22. TYLENOL [Concomitant]
     Active Substance: ACETAMINOPHEN
     Route: 048
     Dates: start: 20170126, end: 20170130
  23. ENOXAPARIN [Concomitant]
     Active Substance: ENOXAPARIN
     Indication: PROPHYLAXIS
     Route: 058
     Dates: start: 20161217, end: 20161222
  24. CEFTRIAXONE. [Concomitant]
     Active Substance: CEFTRIAXONE
     Route: 042
     Dates: start: 20170113, end: 20170114
  25. BUMEX [Concomitant]
     Active Substance: BUMETANIDE
     Route: 042
     Dates: start: 20170116, end: 20170118
  26. XARELTO [Concomitant]
     Active Substance: RIVAROXABAN
     Indication: ATRIAL FIBRILLATION
     Route: 048
     Dates: start: 20170119, end: 20170605
  27. LIDOCAINE/PRILOCAINE [Concomitant]
     Active Substance: LIDOCAINE\PRILOCAINE
     Dosage: 1 OTHER
     Route: 061
     Dates: start: 20161028, end: 20170605
  28. DIPHENHYDRAMINE. [Concomitant]
     Active Substance: DIPHENHYDRAMINE
     Route: 048
     Dates: start: 20170109, end: 20170605
  29. AMLODIPINE [Concomitant]
     Active Substance: AMLODIPINE BESYLATE
     Indication: HYPERTENSION
     Route: 048
     Dates: start: 20161218, end: 20170111
  30. METOPROLOL. [Concomitant]
     Active Substance: METOPROLOL
     Indication: DEEP VEIN THROMBOSIS
     Route: 048
     Dates: start: 20170114, end: 20170115
  31. HEPARIN [Concomitant]
     Active Substance: HEPARIN SODIUM
     Indication: ATRIAL FIBRILLATION
     Dosage: 4000 UNIT
     Route: 042
     Dates: start: 20170112, end: 20170118
  32. BUMEX [Concomitant]
     Active Substance: BUMETANIDE
     Indication: HYPERTENSION
     Route: 042
     Dates: start: 20170112, end: 20170116
  33. VERSED [Concomitant]
     Active Substance: MIDAZOLAM HYDROCHLORIDE
     Dosage: 0.5 OTHER
     Route: 042
     Dates: start: 20170117, end: 20170117
  34. BENADRYL [Concomitant]
     Active Substance: DIPHENHYDRAMINE HYDROCHLORIDE
     Indication: INSOMNIA
     Route: 048
     Dates: start: 20160824
  35. PALONOSETRON. [Concomitant]
     Active Substance: PALONOSETRON HYDROCHLORIDE
     Indication: PREMEDICATION
     Route: 042
     Dates: start: 20161103, end: 20161122
  36. SAW PALMETTO [SERENOA REPENS] [Concomitant]
     Indication: DYSURIA
     Route: 048
     Dates: start: 20161201, end: 20161215
  37. CEFTRIAXONE. [Concomitant]
     Active Substance: CEFTRIAXONE
     Indication: URINARY TRACT INFECTION
     Route: 042
     Dates: start: 20161217, end: 20161222
  38. AUGMENTIN [Concomitant]
     Active Substance: AMOXICILLIN\CLAVULANATE POTASSIUM
     Indication: URINARY TRACT INFECTION
     Dosage: 500-125 MG
     Route: 048
     Dates: start: 20170114, end: 20170119
  39. AUGMENTIN [Concomitant]
     Active Substance: AMOXICILLIN\CLAVULANATE POTASSIUM
     Dosage: 500-125 MG
     Route: 048
     Dates: start: 20170129, end: 20170212
  40. PANTOPRAZOLE [Concomitant]
     Active Substance: PANTOPRAZOLE
     Indication: GASTROOESOPHAGEAL REFLUX DISEASE
     Route: 048
     Dates: start: 20170126, end: 20170130
  41. BENADRYL [Concomitant]
     Active Substance: DIPHENHYDRAMINE HYDROCHLORIDE
     Indication: TRANSFUSION
  42. PHENERGAN [Concomitant]
     Active Substance: PROMETHAZINE HYDROCHLORIDE
     Indication: TRANSFUSION
  43. ZOFRAN [Concomitant]
     Active Substance: ONDANSETRON HYDROCHLORIDE
     Indication: NAUSEA
     Route: 048
     Dates: start: 20161021, end: 20170605
  44. HEPARIN FLUSH [Concomitant]
     Active Substance: HEPARIN SODIUM
     Dosage: REPORTED AS HEPARIN FLUSH (100 UNITS/1 ML)
     Route: 042
     Dates: start: 20161026, end: 20170605
  45. TYLENOL [Concomitant]
     Active Substance: ACETAMINOPHEN
     Indication: TRANSFUSION REACTION
     Route: 048
     Dates: start: 20161117, end: 20161117
  46. HEPARIN [Concomitant]
     Active Substance: HEPARIN SODIUM
     Indication: DEEP VEIN THROMBOSIS
     Dosage: 1000 UNIT
     Route: 042
     Dates: start: 20170112, end: 20170119
  47. CARDIZEM [Concomitant]
     Active Substance: DILTIAZEM HYDROCHLORIDE
     Indication: ATRIAL FIBRILLATION
     Route: 048
     Dates: start: 20170116, end: 20170118
  48. ACETAMINOPHEN. [Concomitant]
     Active Substance: ACETAMINOPHEN
     Indication: BACK PAIN
     Dosage: REPORTED AS: ACETAMINOPHEN (325-650 MG)
     Route: 048
     Dates: start: 20161024, end: 20170605
  49. ACETAMINOPHEN. [Concomitant]
     Active Substance: ACETAMINOPHEN
     Route: 048
     Dates: start: 20170115, end: 20170605
  50. DEXAMETHASONE. [Concomitant]
     Active Substance: DEXAMETHASONE
     Indication: PREMEDICATION
     Route: 042
     Dates: start: 20161103, end: 20161122
  51. SAW PALMETTO [SERENOA REPENS] [Concomitant]
     Indication: BENIGN PROSTATIC HYPERPLASIA
  52. CEFTRIAXONE. [Concomitant]
     Active Substance: CEFTRIAXONE
     Route: 042
     Dates: start: 20170125, end: 20170125
  53. ATIVAN [Concomitant]
     Active Substance: LORAZEPAM
     Indication: INSOMNIA
     Route: 048
     Dates: start: 20170116, end: 20170124
  54. ATIVAN [Concomitant]
     Active Substance: LORAZEPAM
     Indication: ANXIETY
  55. CARVEDILOL. [Concomitant]
     Active Substance: CARVEDILOL
     Indication: TACHYCARDIA
     Route: 048
     Dates: start: 20170112, end: 20170114
  56. CARVEDILOL. [Concomitant]
     Active Substance: CARVEDILOL
     Indication: HYPERTENSION
  57. DILTIAZEM. [Concomitant]
     Active Substance: DILTIAZEM
     Route: 042
     Dates: start: 20170114, end: 20170117
  58. COLACE [Concomitant]
     Active Substance: DOCUSATE SODIUM
     Indication: CONSTIPATION
     Route: 048
     Dates: start: 20161026, end: 20170118
  59. PHENERGAN [Concomitant]
     Active Substance: PROMETHAZINE HYDROCHLORIDE
     Indication: NAUSEA
     Route: 048
     Dates: start: 20161021, end: 20170605
  60. TYLENOL [Concomitant]
     Active Substance: ACETAMINOPHEN
     Indication: BACK PAIN
     Route: 054
     Dates: start: 20170126, end: 20170130
  61. SENNOKOTT [Concomitant]
     Indication: CONSTIPATION
     Route: 048
     Dates: start: 20161220
  62. METOPROLOL. [Concomitant]
     Active Substance: METOPROLOL
     Indication: HYPERTENSION
     Route: 048
     Dates: start: 20170111, end: 20170111
  63. METOPROLOL. [Concomitant]
     Active Substance: METOPROLOL
     Route: 048
     Dates: start: 20170115, end: 20170116
  64. ACETAMINOPHEN. [Concomitant]
     Active Substance: ACETAMINOPHEN
     Indication: BACK PAIN
     Route: 048
     Dates: start: 20170115

REACTIONS (4)
  - Fatigue [Recovered/Resolved]
  - Myositis [Recovered/Resolved]
  - Myasthenia gravis [Recovered/Resolved]
  - Atrial flutter [Recovered/Resolved]

NARRATIVE: CASE EVENT DATE: 20161216
